FAERS Safety Report 5702218-4 (Version None)
Quarter: 2008Q2

REPORT INFORMATION
  Report Type: 
  Country: None (occurrence: None)
  Receive Date: 20080408
  Receipt Date: 20080327
  Transmission Date: 20081010
  Serious: Yes (Death)
  Sender: FDA-Public Use
  Company Number: 2008EU000633

PATIENT
  Age: 42 Year
  Sex: Female

DRUGS (5)
  1. TACROLIMUS [Suspect]
     Indication: BONE MARROW TRANSPLANT
     Dosage: 2 MH, UID/QD
  2. CYCLOSPORINE [Suspect]
     Indication: BONE MARROW TRANSPLANT
  3. METHYLPREDNISOLONE [Concomitant]
  4. CEFEPIME [Concomitant]
  5. METRONIDAZOLE (METRONIDAZOLE SODIUM) [Concomitant]

REACTIONS (7)
  - CONFUSIONAL STATE [None]
  - GASTRITIS HAEMORRHAGIC [None]
  - GRAFT VERSUS HOST DISEASE [None]
  - HALLUCINATION [None]
  - HEPATIC FAILURE [None]
  - NEUROTOXICITY [None]
  - RASH [None]
